FAERS Safety Report 10654454 (Version 1)
Quarter: 2014Q4

REPORT INFORMATION
  Report Type: Spontaneous
  Country: US (occurrence: None)
  Receive Date: 20141215
  Receipt Date: 20141215
  Transmission Date: 20150529
  Serious: Yes (Hospitalization)
  Sender: FDA-Public Use
  Company Number: None

PATIENT
  Age: 58 Year
  Sex: Female
  Weight: 99.3 kg

DRUGS (7)
  1. OXYCONTIN [Concomitant]
     Active Substance: OXYCODONE HYDROCHLORIDE
  2. LASIX [Concomitant]
     Active Substance: FUROSEMIDE
  3. TEMODAR [Suspect]
     Active Substance: TEMOZOLOMIDE
     Indication: LUNG CANCER METASTATIC
     Dosage: 150MG,/M2/DAY X5 DAYS?
     Dates: start: 20141208, end: 20141211
  4. METHOXYAMINE [Suspect]
     Active Substance: METHOXYAMINE
     Indication: INVESTIGATION
     Dates: start: 20141208
  5. DILAUDID [Concomitant]
     Active Substance: HYDROMORPHONE HYDROCHLORIDE
  6. TIMOLOL [Concomitant]
     Active Substance: TIMOLOL
  7. ONDANSETRON [Concomitant]
     Active Substance: ONDANSETRON

REACTIONS (7)
  - Pain [None]
  - Hypoxia [None]
  - Tachypnoea [None]
  - Cough [None]
  - Asthenia [None]
  - Anaemia [None]
  - Dizziness [None]

NARRATIVE: CASE EVENT DATE: 20141211
